FAERS Safety Report 6013662-2 (Version None)
Quarter: 2008Q4

REPORT INFORMATION
  Report Type: 
  Country: None (occurrence: None)
  Receive Date: 20081218
  Receipt Date: 20081218
  Transmission Date: 20090506
  Serious: No
  Sender: FDA-Public Use
  Company Number: None

PATIENT
  Age: 61 Year
  Sex: Male

DRUGS (1)
  1. VARENICLINE [Suspect]
     Indication: SMOKING CESSATION THERAPY
     Dosage: 1 MG BID SQ
     Route: 058
     Dates: start: 20070613, end: 20070620

REACTIONS (3)
  - DRUG INTOLERANCE [None]
  - DYSPNOEA [None]
  - THROAT TIGHTNESS [None]
